FAERS Safety Report 6203119-8 (Version None)
Quarter: 2009Q2

REPORT INFORMATION
  Report Type: 
  Country: None (occurrence: None)
  Receive Date: 20090521
  Receipt Date: 20080514
  Transmission Date: 20091009
  Serious: Yes (Death, Other)
  Sender: FDA-Public Use
  Company Number: GXKR2009NO05846

PATIENT
  Age: 82 Year
  Sex: Male

DRUGS (1)
  1. PREDNISOLONE [Suspect]
     Indication: PEMPHIGOID
     Dosage: 60 MG ; 30 MG

REACTIONS (5)
  - AORTIC ANEURYSM RUPTURE [None]
  - BACK PAIN [None]
  - FALL [None]
  - GASTRIC ULCER HAEMORRHAGE [None]
  - SHOCK [None]
